FAERS Safety Report 25035888 (Version 1)
Quarter: 2025Q1

REPORT INFORMATION
  Report Type: Spontaneous
  Country: FR (occurrence: FR)
  Receive Date: 20250304
  Receipt Date: 20250304
  Transmission Date: 20250408
  Serious: Yes (Death, Congenital Anomaly)
  Sender: ACCORD
  Company Number: None

PATIENT
  Sex: Female
  Weight: 2.47 kg

DRUGS (1)
  1. METHOTREXATE [Suspect]
     Active Substance: METHOTREXATE
     Indication: Rheumatoid arthritis
     Dates: start: 2024, end: 202406

REACTIONS (11)
  - Multiple congenital abnormalities [Fatal]
  - Drug exposure before pregnancy [Recovered/Resolved]
  - Foetal exposure during pregnancy [Recovered/Resolved]
  - Fallot^s tetralogy [Not Recovered/Not Resolved]
  - Renal hypoplasia [Not Recovered/Not Resolved]
  - Craniofacial deformity [Not Recovered/Not Resolved]
  - Anomaly of external ear congenital [Not Recovered/Not Resolved]
  - Macrocephaly [Not Recovered/Not Resolved]
  - Anal atresia [Not Recovered/Not Resolved]
  - Congenital central nervous system anomaly [Not Recovered/Not Resolved]
  - Polyhydramnios [Not Recovered/Not Resolved]

NARRATIVE: CASE EVENT DATE: 20241121
